FAERS Safety Report 8294637-X (Version None)
Quarter: 2012Q2

REPORT INFORMATION
  Report Type: 
  Country: None (occurrence: None)
  Receive Date: 20120418
  Receipt Date: 20110423
  Transmission Date: 20120825
  Serious: No
  Sender: FDA-Public Use
  Company Number: US-ABBOTT-11P-163-0721752-00

PATIENT

DRUGS (2)
  1. ZEMPLAR [Suspect]
     Indication: PRODUCT USED FOR UNKNOWN INDICATION
  2. CAL-D [Concomitant]
     Indication: MINERAL SUPPLEMENTATION

REACTIONS (1)
  - BLOOD CALCIUM INCREASED [None]
